FAERS Safety Report 9504548 (Version 2)
Quarter: 2013Q4

REPORT INFORMATION
  Report Type: Spontaneous
  Country: US (occurrence: US)
  Receive Date: 20130906
  Receipt Date: 20131008
  Transmission Date: 20140711
  Serious: Yes (Other)
  Sender: FDA-Public Use
  Company Number: US-ASTELLAS-2013US009389

PATIENT
  Sex: Male

DRUGS (1)
  1. XTANDI [Suspect]
     Indication: PROSTATE CANCER
     Dosage: 160 MG, UID/QD
     Route: 048
     Dates: start: 20130821

REACTIONS (9)
  - Weight decreased [Unknown]
  - Aphagia [Unknown]
  - Decreased appetite [Unknown]
  - Dehydration [Recovered/Resolved]
  - Nausea [Unknown]
  - Vomiting [Unknown]
  - Candida infection [Unknown]
  - Abdominal discomfort [Unknown]
  - Diarrhoea [Recovered/Resolved]
